APPROVED DRUG PRODUCT: DALGAN
Active Ingredient: DEZOCINE
Strength: 5MG/ML
Dosage Form/Route: INJECTABLE;INJECTION
Application: N019082 | Product #001
Applicant: ASTRAZENECA LP
Approved: Dec 29, 1989 | RLD: No | RS: No | Type: DISCN